FAERS Safety Report 12612025 (Version 2)
Quarter: 2016Q3

REPORT INFORMATION
  Report Type: Report from Study
  Country: CA (occurrence: CA)
  Receive Date: 20160801
  Receipt Date: 20160803
  Transmission Date: 20161109
  Serious: Yes (Other)
  Sender: FDA-Public Use
  Company Number: CA-JNJFOC-20160327072

PATIENT
  Age: 27 Year
  Sex: Male
  Weight: 128.5 kg

DRUGS (2)
  1. REMICADE [Suspect]
     Active Substance: INFLIXIMAB
     Indication: COLITIS ULCERATIVE
     Route: 042
     Dates: start: 20150829
  2. REMICADE [Suspect]
     Active Substance: INFLIXIMAB
     Indication: COLITIS ULCERATIVE
     Route: 042
     Dates: start: 20160727

REACTIONS (15)
  - Diarrhoea [Not Recovered/Not Resolved]
  - Abdominal pain [Not Recovered/Not Resolved]
  - Nausea [Unknown]
  - Headache [Unknown]
  - Haematochezia [Recovering/Resolving]
  - Pyrexia [Recovered/Resolved]
  - Abdominal pain upper [Unknown]
  - Decreased appetite [Unknown]
  - Chest pain [Unknown]
  - General physical health deterioration [Recovering/Resolving]
  - Sinusitis [Unknown]
  - Gastrointestinal sounds abnormal [Unknown]
  - Muscular weakness [Unknown]
  - Mucous stools [Unknown]
  - Influenza [Unknown]

NARRATIVE: CASE EVENT DATE: 20160322
